FAERS Safety Report 6048018-X (Version None)
Quarter: 2009Q1

REPORT INFORMATION
  Report Type: 
  Country: None (occurrence: None)
  Receive Date: 20090123
  Receipt Date: 20090121
  Transmission Date: 20090719
  Serious: Yes (Other)
  Sender: FDA-Public Use
  Company Number: US-RB-008447-09

PATIENT
  Sex: Male

DRUGS (3)
  1. SUBOXONE [Suspect]
     Route: 060
     Dates: start: 20090112
  2. PHENERGAN HCL [Concomitant]
     Indication: NAUSEA
     Route: 065
  3. CYMBALTA [Concomitant]
     Indication: DEPRESSION
     Route: 065

REACTIONS (2)
  - HALLUCINATION [None]
  - PRURITUS [None]
